FAERS Safety Report 5415522-4 (Version None)
Quarter: 2007Q3

REPORT INFORMATION
  Report Type: 
  Country: None (occurrence: None)
  Receive Date: 20070815
  Receipt Date: 20070810
  Transmission Date: 20080115
  Serious: Yes (Death, Life-Threatening)
  Sender: FDA-Public Use
  Company Number: A0666060A

PATIENT
  Age: 37 Year
  Sex: Male

DRUGS (5)
  1. WELLBUTRIN SR [Suspect]
     Indication: DEPRESSION
     Dosage: 150MG TWICE PER DAY
     Route: 048
     Dates: start: 20061019
  2. KLONOPIN [Concomitant]
  3. PRAZOSIN HCL [Concomitant]
  4. DULOXETINE [Concomitant]
  5. SEROQUEL [Concomitant]

REACTIONS (1)
  - CARDIAC FAILURE [None]
